FAERS Safety Report 9464338 (Version 2)
Quarter: 2013Q3

REPORT INFORMATION
  Report Type: Spontaneous
  Country: US (occurrence: US)
  Receive Date: 20130819
  Receipt Date: 20130822
  Transmission Date: 20140515
  Serious: Yes (Hospitalization)
  Sender: FDA-Public Use
  Company Number: US-GILEAD-2013-0081414

PATIENT
  Sex: Female

DRUGS (4)
  1. LETAIRIS [Suspect]
     Indication: PULMONARY ARTERIAL HYPERTENSION
     Dosage: 10 MG, QD
     Route: 048
     Dates: start: 20110511
  2. ADCIRCA [Concomitant]
  3. TYVASO [Concomitant]
  4. NA [Concomitant]

REACTIONS (5)
  - Chest pain [Unknown]
  - Feeling abnormal [Unknown]
  - Pain [Unknown]
  - Oxygen supplementation [Unknown]
  - Dizziness [Unknown]
